FAERS Safety Report 7918274-9 (Version None)
Quarter: 2011Q4

REPORT INFORMATION
  Report Type: 
  Country: None (occurrence: None)
  Receive Date: 20111116
  Receipt Date: 20111108
  Transmission Date: 20120403
  Serious: Yes (Hospitalization)
  Sender: FDA-Public Use
  Company Number: JP-GLAXOSMITHKLINE-B0760042A

PATIENT
  Sex: Female

DRUGS (3)
  1. FEMARA [Concomitant]
     Indication: BREAST CANCER
     Dosage: 120MG PER DAY
     Route: 048
     Dates: start: 20101104
  2. XELODA [Suspect]
     Indication: BREAST CANCER
     Dosage: 1800MG PER DAY
     Route: 048
     Dates: start: 20091115
  3. TYKERB [Suspect]
     Indication: BREAST CANCER
     Dosage: 1250MG PER DAY
     Route: 048
     Dates: start: 20091115

REACTIONS (1)
  - GASTRIC ULCER HAEMORRHAGE [None]
